FAERS Safety Report 11189142 (Version 1)
Quarter: 2015Q2

REPORT INFORMATION
  Report Type: Spontaneous
  Country: US (occurrence: US)
  Receive Date: 20150615
  Receipt Date: 20150615
  Transmission Date: 20150821
  Serious: Yes (Death, Other)
  Sender: FDA-Public Use
  Company Number: US-009507513-1506USA006609

PATIENT
  Age: 25 Year
  Sex: Female

DRUGS (1)
  1. MAXALT [Suspect]
     Active Substance: RIZATRIPTAN BENZOATE
     Indication: MIGRAINE
     Dosage: 5 MG, TID
     Route: 048
     Dates: start: 20110509

REACTIONS (1)
  - Seizure [Fatal]

NARRATIVE: CASE EVENT DATE: 20110511
